FAERS Safety Report 8842034 (Version 1)
Quarter: 2012Q4

REPORT INFORMATION
  Report Type: 
  Country: BR (occurrence: BR)
  Receive Date: 20121016
  Receipt Date: 20121016
  Transmission Date: 20130627
  Serious: Yes (Other)
  Sender: FDA-Public Use
  Company Number: BR-PFIZER INC-2012256057

PATIENT
  Age: 67 Year
  Sex: Male
  Weight: 64 kg

DRUGS (7)
  1. BENICAR [Suspect]
     Indication: HYPERTENSION
     Dosage: 40 mg, once a day
     Route: 048
     Dates: start: 20101029, end: 201208
  2. AMLODIPINE BESILATE [Suspect]
     Indication: HYPERTENSION
     Dosage: 2.5 mg, once a day
     Route: 048
     Dates: start: 20101029
  3. ALISKIREN [Concomitant]
     Dosage: 300 mg, UNK
     Route: 065
     Dates: end: 201206
  4. ACETYLSALICYLIC ACID [Concomitant]
     Dosage: UNK
     Route: 065
  5. ATORVASTATIN [Concomitant]
     Dosage: UNK
     Route: 065
  6. ALLOPURINOL [Concomitant]
     Dosage: UNK
     Route: 065
  7. INSULIN [Concomitant]
     Dosage: UNK
     Route: 065

REACTIONS (5)
  - Haemodialysis [Not Recovered/Not Resolved]
  - Weight decreased [Not Recovered/Not Resolved]
  - Hypotension [Recovered/Resolved]
  - Arrhythmia [Recovered/Resolved]
  - Diarrhoea [Recovered/Resolved]
